FAERS Safety Report 12303876 (Version 1)
Quarter: 2016Q2

REPORT INFORMATION
  Report Type: Spontaneous
  Country: None (occurrence: None)
  Receive Date: 20160425
  Receipt Date: 20160425
  Transmission Date: 20160815
  Serious: Yes (Disabling, Other)
  Sender: FDA-Public Use
  Company Number: None

PATIENT
  Age: 34 Year
  Sex: Male

DRUGS (2)
  1. DOXYCYCLINE. [Suspect]
     Active Substance: DOXYCYCLINE
  2. NIZORAL [Suspect]
     Active Substance: KETOCONAZOLE

REACTIONS (5)
  - Abdominal pain [None]
  - Helicobacter infection [None]
  - Gastric cancer stage IV [None]
  - Chest pain [None]
  - Drug interaction [None]

NARRATIVE: CASE EVENT DATE: 20150806
